FAERS Safety Report 18248583 (Version 1)
Quarter: 2020Q3

REPORT INFORMATION
  Report Type: Report from Study
  Country: CA (occurrence: CA)
  Receive Date: 20200909
  Receipt Date: 20200909
  Transmission Date: 20201103
  Serious: Yes (Other)
  Sender: FDA-Public Use
  Company Number: CA-JNJFOC-20200842441

PATIENT
  Age: 63 Year
  Sex: Male
  Weight: 114.7 kg

DRUGS (2)
  1. REMICADE [Suspect]
     Active Substance: INFLIXIMAB
     Indication: COLITIS ULCERATIVE
     Route: 042
     Dates: start: 20200710
  2. PREDNISONE. [Concomitant]
     Active Substance: PREDNISONE
     Indication: PRODUCT USED FOR UNKNOWN INDICATION
     Route: 065

REACTIONS (6)
  - Abdominal pain [Unknown]
  - Diarrhoea [Unknown]
  - Abdominal distension [Unknown]
  - Asthenia [Unknown]
  - Fatigue [Unknown]
  - Haematochezia [Unknown]

NARRATIVE: CASE EVENT DATE: 2020
